FAERS Safety Report 22256403 (Version 1)
Quarter: 2023Q2

REPORT INFORMATION
  Report Type: Report from Study
  Country: PT (occurrence: KR)
  Receive Date: 20230426
  Receipt Date: 20230426
  Transmission Date: 20230722
  Serious: Yes (Other)
  Sender: FDA-Public Use
  Company Number: KR-ZBN-001-PMS-S42006-01

PATIENT
  Sex: Female
  Weight: 63 kg

DRUGS (3)
  1. ESLICARBAZEPINE ACETATE [Suspect]
     Active Substance: ESLICARBAZEPINE ACETATE
     Indication: Epilepsy
     Dosage: 400 MILLIGRAM, 1X / DAY
     Route: 048
     Dates: start: 20221102, end: 20221122
  2. KEPIRAM [Concomitant]
     Indication: Epilepsy
     Dosage: 1000 MILLIGRAM, 2X / DAY
     Route: 048
     Dates: start: 20221102
  3. GREIA [Concomitant]
     Indication: Epilepsy
     Dosage: 400 MILLIGRAM, 2X / DAY
     Route: 048
     Dates: start: 20221102

REACTIONS (2)
  - Generalised tonic-clonic seizure [Unknown]
  - Underdose [Unknown]

NARRATIVE: CASE EVENT DATE: 20221116
